FAERS Safety Report 9100763 (Version 1)
Quarter: 2013Q1

REPORT INFORMATION
  Report Type: Spontaneous
  Country: US (occurrence: US)
  Receive Date: 20130129
  Receipt Date: 20130129
  Transmission Date: 20140127
  Serious: No
  Sender: FDA-Public Use
  Company Number: US-TARO-2012P1064440

PATIENT
  Age: 55 Year
  Sex: Female

DRUGS (3)
  1. CLOMIPRAMINE HCL [Suspect]
     Route: 048
  2. CLOMIPRAMINE HCL [Suspect]
     Indication: DEPRESSION
     Route: 048
  3. VITAMINS [Concomitant]

REACTIONS (1)
  - Drug effect decreased [Not Recovered/Not Resolved]
